FAERS Safety Report 9376946 (Version 1)
Quarter: 2013Q3

REPORT INFORMATION
  Report Type: Spontaneous
  Country: FR (occurrence: FR)
  Receive Date: 20130701
  Receipt Date: 20130701
  Transmission Date: 20140515
  Serious: Yes (Other)
  Sender: FDA-Public Use
  Company Number: PHHY2013FR066716

PATIENT
  Age: 75 Year
  Sex: Male

DRUGS (3)
  1. EXFORGE [Suspect]
     Indication: HYPERTENSION
     Dosage: 1 DF, (160MG VALS, 5MG AMLO), QD
     Route: 048
     Dates: start: 200702
  2. MECIR [Suspect]
     Indication: BENIGN PROSTATIC HYPERPLASIA
     Dosage: 0.4 MG, QD
     Route: 048
     Dates: start: 200702
  3. CHRONADALATE [Suspect]
     Indication: HYPERTENSION
     Route: 048
     Dates: start: 1998, end: 2007

REACTIONS (2)
  - Tendon rupture [Recovering/Resolving]
  - Tendonitis [Unknown]
